FAERS Safety Report 8606509-9 (Version None)
Quarter: 2012Q3

REPORT INFORMATION
  Report Type: 
  Country: None (occurrence: None)
  Receive Date: 20120820
  Receipt Date: 20120812
  Transmission Date: 20120928
  Serious: Yes (Hospitalization)
  Sender: FDA-Public Use
  Company Number: GB-JNJFOC-20120706446

PATIENT
  Age: 55 Year
  Sex: Female
  Weight: 88.91 kg

DRUGS (1)
  1. EVICEL [Suspect]
     Indication: HAEMOSTASIS
     Dosage: 2 X 2ML KITS
     Route: 050
     Dates: start: 20120627, end: 20120627

REACTIONS (2)
  - PULMONARY EMBOLISM [None]
  - DEVICE MALFUNCTION [None]
